FAERS Safety Report 17395709 (Version 1)
Quarter: 2020Q1

REPORT INFORMATION
  Report Type: Spontaneous
  Country: US (occurrence: US)
  Receive Date: 20200206
  Receipt Date: 20200206
  Transmission Date: 20200409
  Serious: Yes (Other)
  Sender: FDA-Public Use
  Company Number: None

PATIENT
  Age: 68 Year
  Sex: Male
  Weight: 75.15 kg

DRUGS (2)
  1. TRIAMZERINE HCL [Concomitant]
  2. TIZANIDINE HCL [Suspect]
     Active Substance: TIZANIDINE HYDROCHLORIDE
     Indication: POSTOPERATIVE ANALGESIA
     Dosage: ?          QUANTITY:60 TABLET(S);?
     Route: 048
     Dates: start: 20200205, end: 20200205

REACTIONS (3)
  - Speech disorder [None]
  - Hallucination [None]
  - Balance disorder [None]

NARRATIVE: CASE EVENT DATE: 20200205
